FAERS Safety Report 8997181 (Version 1)
Quarter: 2012Q4

REPORT INFORMATION
  Report Type: Spontaneous
  Country: DK (occurrence: None)
  Receive Date: 20121221
  Receipt Date: 20121221
  Transmission Date: 20130627
  Serious: Yes (Other)
  Sender: FDA-Public Use
  Company Number: 2012MA014191

PATIENT
  Age: 65 Year
  Sex: Male

DRUGS (5)
  1. OXALIPLATIN [Suspect]
     Indication: ADENOCARCINOMA OF COLON
     Route: 042
     Dates: start: 20120626, end: 20121026
  2. FLUOROURACIL [Suspect]
     Indication: ADENOCARCINOMA OF COLON
     Route: 042
     Dates: start: 20120626, end: 20121026
  3. LEVOFOLENE [Concomitant]
  4. CARDIOASPIRIN [Concomitant]
  5. TETRACYCLINE [Concomitant]

REACTIONS (2)
  - Blood iron increased [None]
  - Hyperbilirubinaemia [None]
